FAERS Safety Report 18258807 (Version 2)
Quarter: 2020Q3

REPORT INFORMATION
  Report Type: Spontaneous
  Country: US (occurrence: US)
  Receive Date: 20200911
  Receipt Date: 20200925
  Transmission Date: 20201103
  Serious: Yes (Other)
  Sender: FDA-Public Use
  Company Number: US-ASTRAZENECA-2020SF04027

PATIENT
  Age: 68 Year
  Sex: Female
  Weight: 41.7 kg

DRUGS (3)
  1. BEVESPI AEROSPHERE [Suspect]
     Active Substance: FORMOTEROL FUMARATE\GLYCOPYRROLATE
     Indication: EMPHYSEMA
     Dosage: 9 MCG/4.8 MCG 2 INHALATIONS TWICE A DAY
     Route: 055
     Dates: start: 2018
  2. SYMBICORT [Suspect]
     Active Substance: BUDESONIDE\FORMOTEROL FUMARATE DIHYDRATE
     Indication: CHRONIC OBSTRUCTIVE PULMONARY DISEASE
     Dosage: DOSE AND FREQUENCY UNKNOWN UNKNOWN
     Route: 055
     Dates: end: 2018
  3. BEVESPI AEROSPHERE [Suspect]
     Active Substance: FORMOTEROL FUMARATE\GLYCOPYRROLATE
     Indication: CHRONIC OBSTRUCTIVE PULMONARY DISEASE
     Dosage: 9 MCG/4.8 MCG 2 INHALATIONS TWICE A DAY
     Route: 055
     Dates: start: 2018

REACTIONS (4)
  - Asthenia [Unknown]
  - Chronic obstructive pulmonary disease [Unknown]
  - Speech disorder [Unknown]
  - Device malfunction [Unknown]
